FAERS Safety Report 14244247 (Version 2)
Quarter: 2020Q2

REPORT INFORMATION
  Report Type: Report from Study
  Country: AU (occurrence: AU)
  Receive Date: 20171201
  Receipt Date: 20200518
  Transmission Date: 20200713
  Serious: Yes (Other)
  Sender: FDA-Public Use
  Company Number: AU-JNJFOC-20171200152

PATIENT
  Sex: Female

DRUGS (2)
  1. REMICADE [Suspect]
     Active Substance: INFLIXIMAB
     Indication: PSORIATIC ARTHROPATHY
     Route: 042
  2. REMICADE [Suspect]
     Active Substance: INFLIXIMAB
     Route: 042
     Dates: start: 20171116, end: 201711

REACTIONS (6)
  - Extraocular muscle paresis [Unknown]
  - Paraesthesia oral [Unknown]
  - Headache [Unknown]
  - Flushing [Unknown]
  - Lethargy [Unknown]
  - Infusion related reaction [Unknown]
